FAERS Safety Report 16528008 (Version 2)
Quarter: 2019Q3

REPORT INFORMATION
  Report Type: Spontaneous
  Country: ES (occurrence: ES)
  Receive Date: 20190704
  Receipt Date: 20190724
  Transmission Date: 20191004
  Serious: Yes (Other)
  Sender: FDA-Public Use
  Company Number: ES-AMGEN-ESPSP2019104232

PATIENT
  Age: 60 Year
  Sex: Female

DRUGS (3)
  1. PROLIA [Suspect]
     Active Substance: DENOSUMAB
     Dosage: UNK
     Route: 065
     Dates: start: 201903
  2. PROLIA [Suspect]
     Active Substance: DENOSUMAB
     Indication: OSTEOPOROSIS POSTMENOPAUSAL
     Dosage: UNK
     Route: 065
     Dates: end: 201803
  3. HIDROFEROL [Concomitant]
     Active Substance: CALCIFEDIOL
     Dosage: UNK UNK, Q2WK

REACTIONS (2)
  - Lumbar vertebral fracture [Unknown]
  - Dental care [Unknown]

NARRATIVE: CASE EVENT DATE: 20190326
